FAERS Safety Report 15770729 (Version 1)
Quarter: 2018Q4

REPORT INFORMATION
  Report Type: Spontaneous
  Country: GB (occurrence: GB)
  Receive Date: 20181228
  Receipt Date: 20181228
  Transmission Date: 20190205
  Serious: Yes (Other)
  Sender: FDA-Public Use
  Company Number: GB-SAKK-2018SA390257AA

PATIENT
  Age: 15 Year
  Sex: Female
  Weight: 53.4 kg

DRUGS (2)
  1. CLEXANE [Suspect]
     Active Substance: ENOXAPARIN SODIUM
     Dosage: UNK
     Route: 065
  2. CLEXANE [Suspect]
     Active Substance: ENOXAPARIN SODIUM
     Indication: DEEP VEIN THROMBOSIS
     Dosage: 100 MG, UNK
     Route: 051
     Dates: start: 20180829, end: 20181201

REACTIONS (6)
  - Wheezing [Recovering/Resolving]
  - Injection site mass [Unknown]
  - Injection site bruising [Unknown]
  - Platelet count decreased [Recovering/Resolving]
  - Blood glucose increased [Recovering/Resolving]
  - Dyspnoea [Unknown]

NARRATIVE: CASE EVENT DATE: 20180910
